FAERS Safety Report 8016466-4 (Version None)
Quarter: 2011Q4

REPORT INFORMATION
  Report Type: 
  Country: None (occurrence: None)
  Receive Date: 20111230
  Receipt Date: 20111221
  Transmission Date: 20120403
  Serious: Yes (Hospitalization, Other)
  Sender: FDA-Public Use
  Company Number: BR-ABBOTT-11P-020-0713254-00

PATIENT
  Sex: Male

DRUGS (3)
  1. HUMIRA [Suspect]
     Dosage: ONCE
     Dates: start: 20110726, end: 20110726
  2. HUMIRA [Suspect]
     Indication: CROHN'S DISEASE
     Dosage: ONCE
     Dates: start: 20100712
  3. PEDIALYTE SR 90 [Suspect]
     Indication: PRODUCT USED FOR UNKNOWN INDICATION

REACTIONS (36)
  - CROHN'S DISEASE [None]
  - PROCTALGIA [None]
  - ANURIA [None]
  - WOUND SECRETION [None]
  - ANAEMIA [None]
  - HAEMORRHAGE [None]
  - HAEMATOCHEZIA [None]
  - FREQUENT BOWEL MOVEMENTS [None]
  - DYSSTASIA [None]
  - CYTOMEGALOVIRUS INFECTION [None]
  - FISTULA [None]
  - WOUND [None]
  - URETHRAL OBSTRUCTION [None]
  - IMMUNOSUPPRESSION [None]
  - DRUG LEVEL DECREASED [None]
  - GRANULOMA [None]
  - FLATULENCE [None]
  - HYPOTENSION [None]
  - ERUCTATION [None]
  - DIZZINESS [None]
  - PYREXIA [None]
  - DIARRHOEA HAEMORRHAGIC [None]
  - INFLAMMATION [None]
  - APHTHOUS STOMATITIS [None]
  - FEELING ABNORMAL [None]
  - DIARRHOEA [None]
  - PERINEAL PAIN [None]
  - GROIN PAIN [None]
  - UNEVALUABLE EVENT [None]
  - HAEMATOCRIT DECREASED [None]
  - NIGHT SWEATS [None]
  - FORMICATION [None]
  - PAIN [None]
  - ABDOMINAL PAIN [None]
  - WEIGHT DECREASED [None]
  - ANORECTAL DISORDER [None]
